FAERS Safety Report 6563323-6 (Version None)
Quarter: 2010Q1

REPORT INFORMATION
  Report Type: 
  Country: None (occurrence: None)
  Receive Date: 20100130
  Receipt Date: 20091208
  Transmission Date: 20100710
  Serious: No
  Sender: FDA-Public Use
  Company Number: US-ABBOTT-09P-163-0614069-00

PATIENT
  Sex: Female
  Weight: 54.48 kg

DRUGS (13)
  1. HUMIRA [Suspect]
     Indication: RHEUMATOID ARTHRITIS
     Route: 058
     Dates: start: 20070101
  2. HYDROCHLOROTHIAZIDE [Concomitant]
     Indication: HYPERTENSION
     Route: 048
     Dates: end: 20090801
  3. HYDROCHLOROTHIAZIDE [Concomitant]
     Route: 048
     Dates: start: 20090801
  4. LISINOPRIL [Concomitant]
     Indication: HYPERTENSION
     Route: 048
     Dates: end: 20090801
  5. LISINOPRIL [Concomitant]
     Route: 048
     Dates: start: 20090801
  6. PREVACID [Concomitant]
     Indication: GASTROOESOPHAGEAL REFLUX DISEASE
     Route: 048
     Dates: end: 20090801
  7. PREVACID [Concomitant]
     Route: 048
     Dates: start: 20090801
  8. RANITIDINE [Concomitant]
     Indication: GASTROOESOPHAGEAL REFLUX DISEASE
     Route: 048
     Dates: end: 20090801
  9. RANITIDINE [Concomitant]
     Route: 048
     Dates: start: 20090801
  10. ZYRTEC [Concomitant]
     Indication: SEASONAL ALLERGY
     Route: 048
  11. BUSPAR [Concomitant]
     Indication: ANXIETY
     Dosage: 10-15 MILLIGRAMS, DAILY
     Route: 048
  12. TRAZODONE [Concomitant]
     Indication: INSOMNIA
     Dosage: 0.3, DAILY
     Route: 048
  13. ALLERGY INJECTIONS [Concomitant]
     Indication: SEASONAL ALLERGY
     Route: 058

REACTIONS (4)
  - BACK PAIN [None]
  - CONSTIPATION [None]
  - FATIGUE [None]
  - VAGINAL HAEMORRHAGE [None]
